FAERS Safety Report 7538815-3 (Version None)
Quarter: 2011Q2

REPORT INFORMATION
  Report Type: 
  Country: None (occurrence: None)
  Receive Date: 20110610
  Receipt Date: 20110121
  Transmission Date: 20111010
  Serious: Yes (Hospitalization, Other)
  Sender: FDA-Public Use
  Company Number: US-BAYER-201032412NA

PATIENT
  Sex: Female
  Weight: 90.703 kg

DRUGS (5)
  1. KEFLEX [Concomitant]
     Dosage: UNK
     Dates: start: 20070801
  2. ASCORBIC ACID [Concomitant]
  3. YAZ [Suspect]
     Indication: ACNE
     Dosage: UNK
     Dates: start: 20070101, end: 20090101
  4. YAZ [Suspect]
     Indication: CONTRACEPTION
     Dates: start: 20060101, end: 20080101
  5. PROTONIX [Concomitant]
     Indication: GASTRIC PH INCREASED

REACTIONS (5)
  - GALLBLADDER DISORDER [None]
  - ABDOMINAL PAIN UPPER [None]
  - DIARRHOEA [None]
  - BILIARY COLIC [None]
  - VOMITING [None]
